FAERS Safety Report 23491850 (Version 2)
Quarter: 2025Q1

REPORT INFORMATION
  Report Type: Report from Study
  Country: US (occurrence: US)
  Receive Date: 20240207
  Receipt Date: 20250115
  Transmission Date: 20250409
  Serious: No
  Sender: HRA PHARMA
  Company Number: US-ORG100014127-2023001031

PATIENT
  Age: 66 Year
  Sex: Male

DRUGS (13)
  1. LYSODREN [Suspect]
     Active Substance: MITOTANE
     Indication: Adrenal gland cancer
     Dosage: 06 TABLETS DAILY
     Route: 048
     Dates: start: 20230831
  2. Tylenol tab 500mg [Concomitant]
     Indication: Product used for unknown indication
  3. Amlodipine TAB 10 MG [Concomitant]
     Indication: Product used for unknown indication
  4. ATORVASTATIN [Concomitant]
     Active Substance: ATORVASTATIN
     Indication: Product used for unknown indication
  5. CARVEDILOL [Concomitant]
     Active Substance: CARVEDILOL
     Indication: Product used for unknown indication
  6. CHOLESTEROL POW ACETATE [Concomitant]
     Indication: Product used for unknown indication
  7. COREG TAB 6.25 MG [Concomitant]
     Indication: Product used for unknown indication
  8. JARDIANCE TAB 25 MG [Concomitant]
     Indication: Product used for unknown indication
  9. LISINOPRIL TAB 40 MG [Concomitant]
     Indication: Product used for unknown indication
  10. METFORMIN TAB 1000 MG [Concomitant]
     Indication: Product used for unknown indication
  11. NITROGLYCERN SUB 0.4 MG [Concomitant]
     Indication: Product used for unknown indication
  12. ONDANSETRON TAB 4 MG ODT [Concomitant]
     Indication: Product used for unknown indication
  13. PROCHLORPER TAB 5MG [Concomitant]
     Indication: Product used for unknown indication

REACTIONS (1)
  - Pruritus [Recovered/Resolved]

NARRATIVE: CASE EVENT DATE: 20230905
